FAERS Safety Report 10297586 (Version 2)
Quarter: 2015Q2

REPORT INFORMATION
  Report Type: Spontaneous
  Country: US (occurrence: US)
  Receive Date: 20140711
  Receipt Date: 20150522
  Transmission Date: 20150821
  Serious: Yes (Congenital Anomaly)
  Sender: FDA-Public Use
  Company Number: US-ELI_LILLY_AND_COMPANY-US201407002742

PATIENT

DRUGS (4)
  1. PROZAC [Suspect]
     Active Substance: FLUOXETINE HYDROCHLORIDE
     Indication: PRODUCT USED FOR UNKNOWN INDICATION
     Dosage: UNK, UNKNOWN
     Route: 064
  2. PRENATAL VITAMINS                  /07499601/ [Concomitant]
     Active Substance: VITAMINS
  3. TERBUTALINE [Concomitant]
     Active Substance: TERBUTALINE
  4. COMPLEX B                          /06817001/ [Concomitant]

REACTIONS (2)
  - Heart disease congenital [Unknown]
  - Foetal exposure during pregnancy [Recovered/Resolved]
